FAERS Safety Report 5605236-X (Version None)
Quarter: 2008Q1

REPORT INFORMATION
  Report Type: 
  Country: None (occurrence: None)
  Receive Date: 20080129
  Receipt Date: 20080122
  Transmission Date: 20080703
  Serious: Yes (Hospitalization, Other)
  Sender: FDA-Public Use
  Company Number: SE-PFIZER INC-2008006548

PATIENT
  Sex: Male

DRUGS (1)
  1. SU-011,248 [Suspect]
     Indication: RENAL CANCER METASTATIC

REACTIONS (1)
  - ARTERIAL THROMBOSIS [None]
